FAERS Safety Report 13905963 (Version 1)
Quarter: 2017Q3

REPORT INFORMATION
  Report Type: Spontaneous
  Country: JP (occurrence: JP)
  Receive Date: 20170825
  Receipt Date: 20170825
  Transmission Date: 20171127
  Serious: Yes (Life-Threatening, Hospitalization, Other)
  Sender: FDA-Public Use
  Company Number: JP-009507513-1706JPN000309J

PATIENT
  Age: 24 Year
  Sex: Female
  Weight: 54 kg

DRUGS (4)
  1. MARVELON [Suspect]
     Active Substance: DESOGESTREL\ETHINYL ESTRADIOL
     Dosage: 1 DF, UNK
     Route: 048
     Dates: start: 20120630, end: 20120727
  2. MARVELON [Suspect]
     Active Substance: DESOGESTREL\ETHINYL ESTRADIOL
     Indication: MENSTRUATION IRREGULAR
     Dosage: UNK DF, UNK
     Route: 048
     Dates: start: 20110909
  3. INFLUENZA HA VACCINE [Concomitant]
     Active Substance: INFLUENZA VIRUS VACCINE
     Dosage: UNK, ONCE A YEAR
     Route: 051
  4. FAVOIR 28 [Suspect]
     Active Substance: DESOGESTREL\ETHINYL ESTRADIOL
     Indication: MENSTRUATION IRREGULAR
     Dosage: 1 DF, UNK
     Route: 048
     Dates: start: 20120728, end: 20120817

REACTIONS (4)
  - Deep vein thrombosis [Recovered/Resolved]
  - Dermoid cyst [Unknown]
  - Pulmonary embolism [Recovered/Resolved]
  - Ovarian neoplasm [Unknown]

NARRATIVE: CASE EVENT DATE: 20120817
